FAERS Safety Report 24774536 (Version 3)
Quarter: 2025Q4

REPORT INFORMATION
  Report Type: Spontaneous
  Country: US (occurrence: US)
  Receive Date: 20241225
  Receipt Date: 20251004
  Transmission Date: 20260119
  Serious: No
  Sender: SANOFI AVENTIS
  Company Number: US-SA-2024SA378537

PATIENT
  Age: 24 Year
  Sex: Male

DRUGS (1)
  1. DUPIXENT [Suspect]
     Active Substance: DUPILUMAB
     Indication: Dermatitis atopic
     Dosage: 300 MG, QOW
     Route: 058
     Dates: start: 202502

REACTIONS (8)
  - Eye pain [Unknown]
  - Ocular hyperaemia [Recovered/Resolved]
  - Eye infection [Recovered/Resolved]
  - Eye pruritus [Unknown]
  - Arthralgia [Unknown]
  - Dermatitis atopic [Recovered/Resolved]
  - Rash [Recovered/Resolved]
  - Eye inflammation [Unknown]

NARRATIVE: CASE EVENT DATE: 20250101
